FAERS Safety Report 5837793-2 (Version None)
Quarter: 2008Q3

REPORT INFORMATION
  Report Type: 
  Country: None (occurrence: None)
  Receive Date: 20080806
  Receipt Date: 20080723
  Transmission Date: 20090109
  Serious: No
  Sender: FDA-Public Use
  Company Number: US024182

PATIENT
  Age: 64 Year
  Sex: Male
  Weight: 72.5755 kg

DRUGS (13)
  1. FENTORA [Suspect]
     Indication: BACK PAIN
     Dosage: 600 UG BUCCAL
     Route: 002
     Dates: start: 20060101
  2. FENTORA [Suspect]
     Indication: BONE PAIN
     Dosage: 600 UG BUCCAL
     Route: 002
     Dates: start: 20060101
  3. FENTORA [Suspect]
     Indication: BACK PAIN
     Dosage: 800 UG BUCCAL
     Route: 002
  4. FENTORA [Suspect]
     Indication: BONE PAIN
     Dosage: 800 UG BUCCAL
     Route: 002
  5. OPANA [Concomitant]
  6. VALIUM [Concomitant]
  7. SYNTHROID [Concomitant]
  8. CYMBALTA [Concomitant]
  9. FLEXERIL [Concomitant]
  10. DHEA SR [Concomitant]
  11. AMBIEN [Concomitant]
  12. DEXEDRINE [Concomitant]
  13. LIMBEREL [Concomitant]

REACTIONS (4)
  - DRUG EFFECT DECREASED [None]
  - DRUG PRESCRIBING ERROR [None]
  - INCORRECT DOSE ADMINISTERED [None]
  - PHARMACEUTICAL PRODUCT COMPLAINT [None]
